FAERS Safety Report 8447125-1 (Version None)
Quarter: 2012Q2

REPORT INFORMATION
  Report Type: 
  Country: None (occurrence: None)
  Receive Date: 20120619
  Receipt Date: 20110524
  Transmission Date: 20120825
  Serious: No
  Sender: FDA-Public Use
  Company Number: US-PFIZER INC-2012142374

PATIENT
  Age: 86 Year
  Sex: Female

DRUGS (7)
  1. CLINDAMYCIN HCL [Suspect]
     Dosage: UNK
  2. METHADONE HCL [Suspect]
     Dosage: UNK
  3. ZESTRIL [Suspect]
     Dosage: UNK
  4. LIDOCAINE HYDROCHLORIDE [Suspect]
     Dosage: UNK
  5. DOXYCYCLINE CALCIUM [Suspect]
     Dosage: UNK
  6. DILANTIN-125 [Suspect]
     Dosage: UNK
  7. PENICILLIN G PROCAINE [Suspect]
     Dosage: UNK

REACTIONS (1)
  - DRUG HYPERSENSITIVITY [None]
